FAERS Safety Report 5388568-2 (Version None)
Quarter: 2007Q3

REPORT INFORMATION
  Report Type: 
  Country: None (occurrence: None)
  Receive Date: 20070716
  Receipt Date: 20070704
  Transmission Date: 20080115
  Serious: Yes (Hospitalization)
  Sender: FDA-Public Use
  Company Number: AU-SANOFI-SYNTHELABO-A01200707255

PATIENT
  Sex: Female

DRUGS (4)
  1. VALPROATE SODIUM [Concomitant]
     Indication: DRUG USE FOR UNKNOWN INDICATION
     Dosage: UNK
     Route: 065
  2. ZOLPIDEM TARTRATE [Suspect]
     Indication: SLEEP DISORDER
     Route: 048
  3. ZOLPIDEM TARTRATE [Suspect]
     Indication: ACCIDENTAL OVERDOSE
     Route: 048
  4. CITALOPRAM HYDROBROMIDE [Concomitant]
     Indication: DRUG USE FOR UNKNOWN INDICATION
     Dosage: UNK
     Route: 065

REACTIONS (4)
  - ABNORMAL SLEEP-RELATED EVENT [None]
  - ACCIDENTAL OVERDOSE [None]
  - AMNESIA [None]
  - ROAD TRAFFIC ACCIDENT [None]
